FAERS Safety Report 7109623-2 (Version None)
Quarter: 2010Q4

REPORT INFORMATION
  Report Type: 
  Country: None (occurrence: None)
  Receive Date: 20101115
  Receipt Date: 20101115
  Transmission Date: 20110411
  Serious: Yes (Hospitalization)
  Sender: FDA-Public Use
  Company Number: None

PATIENT
  Age: 66 Year
  Sex: Female
  Weight: 81.6475 kg

DRUGS (19)
  1. IFOSFAMIDE [Suspect]
     Indication: NON-HODGKIN'S LYMPHOMA
     Dosage: 7.4GM OVER 24 HOURS IV DRIP
     Route: 041
     Dates: start: 20101023, end: 20101024
  2. CARBOPLATIN [Concomitant]
  3. ETOPOSIDE [Concomitant]
  4. ONDANSETRON [Concomitant]
  5. DDEXAMETHASONE [Concomitant]
  6. AZITHROMYCIN [Concomitant]
  7. LOVENOX [Concomitant]
  8. ALLOPURINOL [Concomitant]
  9. LISINOPRIL [Concomitant]
  10. FUROSEMIDE [Concomitant]
  11. PROCHLORPERAXINE [Concomitant]
  12. LEVOTHYROXINE SODIUM [Concomitant]
  13. OMEPRAZOLE [Concomitant]
  14. LISINOPRIL [Concomitant]
  15. GUAIFENSIN DAC [Concomitant]
  16. GUAIFENESIN SR [Concomitant]
  17. FERROUS SULFATE [Concomitant]
  18. CARVEDILOL [Concomitant]
  19. POTASSIUM CHLORIDE [Concomitant]

REACTIONS (3)
  - COMA [None]
  - CONFUSIONAL STATE [None]
  - STATUS EPILEPTICUS [None]
